FAERS Safety Report 19200600 (Version 2)
Quarter: 2021Q2

REPORT INFORMATION
  Report Type: Spontaneous
  Country: US (occurrence: US)
  Receive Date: 20210430
  Receipt Date: 20210628
  Transmission Date: 20210717
  Serious: Yes (Hospitalization)
  Sender: FDA-Public Use
  Company Number: US-ELI_LILLY_AND_COMPANY-US202104012063

PATIENT
  Age: 55 Year
  Sex: Male
  Weight: 90.7 kg

DRUGS (1)
  1. BAMLANIVIMAB 700MG [Suspect]
     Active Substance: BAMLANIVIMAB
     Indication: COVID-19
     Dosage: 700 MG, SINGLE
     Route: 042
     Dates: start: 20210415, end: 20210415

REACTIONS (4)
  - Pulmonary embolism [Unknown]
  - Obstructive shock [Unknown]
  - COVID-19 pneumonia [Unknown]
  - Hypoxia [Unknown]

NARRATIVE: CASE EVENT DATE: 20210420
